FAERS Safety Report 4454922-6 (Version None)
Quarter: 2004Q3

REPORT INFORMATION
  Report Type: 
  Country: None (occurrence: None)
  Receive Date: 20040921
  Receipt Date: 20040906
  Transmission Date: 20050211
  Serious: Yes (Other)
  Sender: FDA-Public Use
  Company Number: AU-GLAXOSMITHKLINE-B0345685A

PATIENT
  Sex: Male

DRUGS (7)
  1. ZIDOVUDINE [Suspect]
     Dosage: 300MG PER DAY
     Dates: start: 20040303
  2. LAMIVUDINE [Suspect]
     Dosage: 150MG PER DAY
     Dates: start: 20040303
  3. LAMIVUDINE [Suspect]
     Dosage: 2MGKH PER DAY
     Dates: start: 20040728
  4. NEVIRAPINE [Concomitant]
  5. VALPROATE [Concomitant]
  6. CLONAZEPAM SOLUTION [Concomitant]
  7. FOLATE [Concomitant]

REACTIONS (4)
  - DRUG EXPOSURE DURING PREGNANCY [None]
  - FOETAL MALFORMATION [None]
  - LIVER DISORDER [None]
  - ULTRASOUND SCAN ABNORMAL [None]
